FAERS Safety Report 12413740 (Version 1)
Quarter: 2016Q2

REPORT INFORMATION
  Report Type: Spontaneous
  Country: US (occurrence: US)
  Receive Date: 20160527
  Receipt Date: 20160527
  Transmission Date: 20160815
  Serious: No
  Sender: FDA-Public Use
  Company Number: US-SUPERNUS PHARMACEUTICALS, INC.-2016SUP00051

PATIENT
  Sex: Male

DRUGS (1)
  1. TROKENDI XR [Suspect]
     Active Substance: TOPIRAMATE
     Indication: PHOTOPHOBIA
     Dosage: UNK
     Route: 048
     Dates: start: 2013, end: 20160308

REACTIONS (3)
  - Cognitive disorder [Unknown]
  - Unevaluable event [Unknown]
  - Product use issue [Unknown]
